FAERS Safety Report 24830863 (Version 2)
Quarter: 2025Q1

REPORT INFORMATION
  Report Type: Report from Study
  Country: US (occurrence: US)
  Receive Date: 20250110
  Receipt Date: 20250220
  Transmission Date: 20250408
  Serious: No
  Sender: SUNOVION
  Company Number: US-SUMITOMO PHARMA SWITZERLAND GMBH-2024SPA006792

PATIENT

DRUGS (16)
  1. ORGOVYX [Suspect]
     Active Substance: RELUGOLIX
     Indication: Prostate cancer
     Dosage: 360 MG, SINGLE
     Route: 048
  2. ORGOVYX [Suspect]
     Active Substance: RELUGOLIX
     Dosage: 120 MG, QD
     Route: 048
  3. BRIMONIDINE [Concomitant]
     Active Substance: BRIMONIDINE TARTRATE
     Route: 047
  4. DORZOLAMIDE [Concomitant]
     Active Substance: DORZOLAMIDE
     Route: 047
  5. LEVOTHYROXINE [Concomitant]
     Active Substance: LEVOTHYROXINE
     Route: 065
  6. LUMIGAN [Concomitant]
     Active Substance: BIMATOPROST
     Route: 047
  7. NUBEQA [Concomitant]
     Active Substance: DAROLUTAMIDE
     Indication: Prostate cancer
     Dosage: 600 MG, BID
     Route: 048
     Dates: start: 202404
  8. METOPROLOL SUCCINATE [Concomitant]
     Active Substance: METOPROLOL SUCCINATE
     Route: 065
  9. PREGABALIN [Concomitant]
     Active Substance: PREGABALIN
     Route: 065
  10. RANIBIZUMAB [Concomitant]
     Active Substance: RANIBIZUMAB
     Route: 065
  11. REQUIP [Concomitant]
     Active Substance: ROPINIROLE HYDROCHLORIDE
     Route: 065
  12. ROCKLATAN [Concomitant]
     Active Substance: LATANOPROST\NETARSUDIL MESYLATE
     Route: 047
  13. SIMVASTATIN [Concomitant]
     Active Substance: SIMVASTATIN
     Route: 065
  14. TRAMADOL [Concomitant]
     Active Substance: TRAMADOL
     Route: 065
  15. VALSARTAN [Concomitant]
     Active Substance: VALSARTAN
     Route: 065
  16. VOLTAREN [Concomitant]
     Active Substance: DICLOFENAC SODIUM
     Route: 065

REACTIONS (2)
  - Staphylococcal infection [Unknown]
  - Tinea cruris [Unknown]

NARRATIVE: CASE EVENT DATE: 20241217
